FAERS Safety Report 6369605-5 (Version None)
Quarter: 2009Q3

REPORT INFORMATION
  Report Type: 
  Country: None (occurrence: None)
  Receive Date: 20090923
  Receipt Date: 20090923
  Transmission Date: 20100115
  Serious: Yes (Hospitalization)
  Sender: FDA-Public Use
  Company Number: PHHO2009DE08349

PATIENT
  Sex: Male
  Weight: 100 kg

DRUGS (4)
  1. ALISKIREN ALI+TAB+HT [Suspect]
     Indication: HYPERTENSION
     Dosage: 150 MG, QD
     Route: 048
     Dates: start: 20090427, end: 20090525
  2. AMLODIPINE [Suspect]
     Dosage: 5 MG, QD
  3. HYDROCHLOROTHIAZIDE [Suspect]
     Dosage: 12.5 MG, QD
  4. NOVALGIN                                /SCH/ [Concomitant]
     Indication: BONE PAIN

REACTIONS (3)
  - CONCOMITANT DISEASE PROGRESSION [None]
  - PANIC ATTACK [None]
  - PSYCHOSOMATIC DISEASE [None]
